FAERS Safety Report 10083682 (Version 2)
Quarter: 2014Q2

REPORT INFORMATION
  Report Type: Spontaneous
  Country: US (occurrence: US)
  Receive Date: 20140417
  Receipt Date: 20140604
  Transmission Date: 20141212
  Serious: No
  Sender: FDA-Public Use
  Company Number: US-PFIZER INC-2014105563

PATIENT
  Sex: Female

DRUGS (1)
  1. ADVIL [Suspect]
     Dosage: UNK, DAILY
     Route: 048

REACTIONS (3)
  - Poor quality drug administered [Unknown]
  - Malaise [Unknown]
  - Product physical issue [Unknown]
